FAERS Safety Report 4885832-8 (Version None)
Quarter: 2006Q1

REPORT INFORMATION
  Report Type: 
  Country: None (occurrence: None)
  Receive Date: 20060120
  Receipt Date: 20050315
  Transmission Date: 20060701
  Serious: Yes (Death, Hospitalization, Other)
  Sender: FDA-Public Use
  Company Number: GBWYE506615MAR05

PATIENT
  Sex: Female

DRUGS (14)
  1. ENBREL [Suspect]
     Indication: RHEUMATOID ARTHRITIS
     Route: 058
     Dates: start: 20040524, end: 20050301
  2. PREDNISOLONE [Concomitant]
     Dosage: UNKNOWN
     Route: 065
  3. MORPHINE SULFATE [Concomitant]
     Route: 065
  4. AMITRIPTYLINE HCL [Concomitant]
     Route: 065
  5. CALCIUM CARBONATE [Concomitant]
     Route: 065
  6. PRAVASTATIN [Concomitant]
     Route: 065
  7. CELEBREX [Concomitant]
     Route: 065
  8. FUROSEMIDE [Concomitant]
     Route: 065
  9. ISONIAZID [Concomitant]
     Route: 065
  10. PYRIDOXINE HCL [Concomitant]
     Route: 065
  11. BISOPROLOL FUMARATE [Concomitant]
     Route: 065
  12. LANSOPRAZOLE [Concomitant]
     Route: 065
  13. ALENDRONATE SODIUM [Concomitant]
     Route: 065
  14. INSULIN [Concomitant]
     Route: 065

REACTIONS (4)
  - CELLULITIS [None]
  - CELLULITIS STREPTOCOCCAL [None]
  - MULTI-ORGAN FAILURE [None]
  - SEPTIC SHOCK [None]
